FAERS Safety Report 4338316-X (Version None)
Quarter: 2004Q2

REPORT INFORMATION
  Report Type: 
  Country: None (occurrence: None)
  Receive Date: 20040409
  Receipt Date: 20040330
  Transmission Date: 20050107
  Serious: Yes (Hospitalization)
  Sender: FDA-Public Use
  Company Number: HQWYE294231MAR04

PATIENT
  Age: 37 Year
  Sex: Female

DRUGS (4)
  1. EFFEXOR [Suspect]
     Dosage: ^37.5 MG ONE TIME ORAL
     Route: 048
     Dates: start: 20031107, end: 20031109
  2. MIRTAZAPINE [Suspect]
     Dosage: ^60 MG ONE TIME^ ORAL
     Route: 048
  3. ZYPREXA [Concomitant]
  4. ACETAMINOPHEN [Concomitant]

REACTIONS (8)
  - ANXIETY [None]
  - DRUG INTERACTION [None]
  - EUPHORIC MOOD [None]
  - EXCITABILITY [None]
  - INAPPROPRIATE AFFECT [None]
  - IRRITABILITY [None]
  - RESTLESSNESS [None]
  - THINKING ABNORMAL [None]
